FAERS Safety Report 9009105 (Version 1)
Quarter: 2013Q1

REPORT INFORMATION
  Report Type: Spontaneous
  Country: US (occurrence: US)
  Receive Date: 20130111
  Receipt Date: 20130111
  Transmission Date: 20140127
  Serious: No
  Sender: FDA-Public Use
  Company Number: US-GLAXOSMITHKLINE-A0995620A

PATIENT
  Age: 70 Year
  Sex: Male

DRUGS (7)
  1. JALYN [Suspect]
     Indication: BENIGN PROSTATIC HYPERPLASIA
     Route: 048
  2. VICTOZA [Concomitant]
  3. GLYBURIDE [Concomitant]
  4. CRESTOR [Concomitant]
  5. AMLODIPINE [Concomitant]
  6. FISH OIL [Concomitant]
  7. VITAMINS [Concomitant]

REACTIONS (1)
  - Diarrhoea [Not Recovered/Not Resolved]
